FAERS Safety Report 15339665 (Version 1)
Quarter: 2018Q3

REPORT INFORMATION
  Report Type: Spontaneous
  Country: CA (occurrence: CA)
  Receive Date: 20180831
  Receipt Date: 20180831
  Transmission Date: 20181010
  Serious: Yes (Other)
  Sender: FDA-Public Use
  Company Number: CA-PFIZER INC-2018345936

PATIENT
  Age: 70 Year

DRUGS (3)
  1. EFFEXOR XR [Suspect]
     Active Substance: VENLAFAXINE HYDROCHLORIDE
     Dosage: UNK
  2. EFFEXOR XR [Suspect]
     Active Substance: VENLAFAXINE HYDROCHLORIDE
     Indication: ANXIETY
     Dosage: 150 MG, UNK
     Dates: start: 2008, end: 2014
  3. EFFEXOR XR [Suspect]
     Active Substance: VENLAFAXINE HYDROCHLORIDE
     Indication: AGITATION
     Dosage: 235 MG, UNK

REACTIONS (5)
  - Myelodysplastic syndrome [Not Recovered/Not Resolved]
  - Overdose [Unknown]
  - Anxiety [Unknown]
  - Hypertension [Unknown]
  - Agitation [Unknown]
